FAERS Safety Report 14456228 (Version 1)
Quarter: 2018Q1

REPORT INFORMATION
  Report Type: Spontaneous
  Country: US (occurrence: US)
  Receive Date: 20180130
  Receipt Date: 20180130
  Transmission Date: 20180509
  Serious: No
  Sender: FDA-Public Use
  Company Number: US-LUNDBECK-DKLU2039037

PATIENT
  Age: 53 Year
  Sex: Female

DRUGS (1)
  1. NORTHERA [Suspect]
     Active Substance: DROXIDOPA
     Indication: AUTONOMIC NEUROPATHY
     Dosage: SCHEDULE B (TITRATING)
     Route: 048
     Dates: start: 20171018, end: 20171022

REACTIONS (6)
  - Nervousness [Recovered/Resolved]
  - Erythema [Recovered/Resolved]
  - Tinnitus [Recovered/Resolved]
  - Visual impairment [Recovered/Resolved]
  - Headache [Not Recovered/Not Resolved]
  - Pruritus [Recovered/Resolved]

NARRATIVE: CASE EVENT DATE: 20171018
